FAERS Safety Report 4496655-6 (Version None)
Quarter: 2004Q4

REPORT INFORMATION
  Report Type: 
  Country: None (occurrence: None)
  Receive Date: 20041108
  Receipt Date: 20041108
  Transmission Date: 20050328
  Serious: Yes (Hospitalization)
  Sender: FDA-Public Use
  Company Number: None

PATIENT
  Age: 56 Year
  Sex: Male
  Weight: 89 kg

DRUGS (1)
  1. LISINOPRIL [Suspect]
     Indication: HYPERTENSION
     Dosage: 5 MG Q DAY ORAL
     Route: 048
     Dates: start: 20011201, end: 20040712

REACTIONS (2)
  - HYPERKALAEMIA [None]
  - MUSCLE CRAMP [None]
